FAERS Safety Report 7690463-0 (Version None)
Quarter: 2011Q3

REPORT INFORMATION
  Report Type: 
  Country: None (occurrence: None)
  Receive Date: 20110812
  Receipt Date: 20110728
  Transmission Date: 20111222
  Serious: Yes (Hospitalization, Other)
  Sender: FDA-Public Use
  Company Number: 1713747-2011-00013

PATIENT
  Sex: Female

DRUGS (5)
  1. DELFLEX W/ DEXTROSE 2.5% LOW MAGNESIUM LOW CALCIUM [Suspect]
     Indication: RENAL FAILURE CHRONIC
     Dosage: 033
     Dates: start: 20110723
  2. LIBERTY CYCLER TUBING TREATMENT SET [Concomitant]
  3. TENCKOFF CATHETER [Concomitant]
  4. DELFLEX W/ DEXTROSE 1.5% LOW MAGNESIUM LOW CALCIUM [Suspect]
     Indication: RENAL FAILURE CHRONIC
     Dosage: 033
     Dates: start: 20110723
  5. LIBERTY DRAIN LINE LEUR TAPER CONNECTOR [Concomitant]

REACTIONS (3)
  - MEDICAL DEVICE COMPLICATION [None]
  - HAEMODIALYSIS [None]
  - DEVICE OCCLUSION [None]
